FAERS Safety Report 4300491-0 (Version None)
Quarter: 2004Q1

REPORT INFORMATION
  Report Type: 
  Country: None (occurrence: None)
  Receive Date: 20040219
  Receipt Date: 20040219
  Transmission Date: 20041129
  Serious: Yes (Hospitalization)
  Sender: FDA-Public Use
  Company Number: None

PATIENT
  Age: 38 Year
  Sex: Male

DRUGS (6)
  1. LITHIUM [Suspect]
     Indication: BIPOLAR DISORDER
     Dosage: 600 MG PO BID
     Route: 048
  2. GLYBURIDE [Concomitant]
  3. METFORMIN [Concomitant]
  4. SIMVASTATIN [Concomitant]
  5. OLANZEPINE [Concomitant]
  6. VALPROIC ACID [Concomitant]

REACTIONS (3)
  - DRUG TOXICITY [None]
  - RENAL FAILURE [None]
  - TREMOR [None]
